FAERS Safety Report 24175850 (Version 1)
Quarter: 2024Q3

REPORT INFORMATION
  Report Type: Report from Study
  Country: CA (occurrence: CA)
  Receive Date: 20240805
  Receipt Date: 20240805
  Transmission Date: 20241017
  Serious: Yes (Other)
  Sender: ABBVIE
  Company Number: CA-ABBVIE-5866205

PATIENT
  Sex: Female

DRUGS (1)
  1. SKYRIZI [Suspect]
     Active Substance: RISANKIZUMAB-RZAA
     Indication: Crohn^s disease
     Route: 058
     Dates: start: 20230127

REACTIONS (4)
  - Ostomy bag placement [Unknown]
  - Abdominal pain [Unknown]
  - Headache [Unknown]
  - Dehydration [Unknown]

NARRATIVE: CASE EVENT DATE: 20240801
